FAERS Safety Report 10111192 (Version 1)
Quarter: 2014Q2

REPORT INFORMATION
  Report Type: Spontaneous
  Country: US (occurrence: US)
  Receive Date: 20140425
  Receipt Date: 20140425
  Transmission Date: 20141212
  Serious: Yes (Hospitalization, Other)
  Sender: FDA-Public Use
  Company Number: US-JNJFOC-20140413834

PATIENT
  Age: 68 Year
  Sex: Female
  Weight: 73.8 kg

DRUGS (1)
  1. XARELTO [Suspect]
     Indication: PULMONARY EMBOLISM
     Route: 048
     Dates: start: 20131217

REACTIONS (2)
  - Acute myocardial infarction [Recovered/Resolved]
  - Drug prescribing error [Unknown]
